FAERS Safety Report 5089944-8 (Version None)
Quarter: 2006Q3

REPORT INFORMATION
  Report Type: 
  Country: None (occurrence: None)
  Receive Date: 20060823
  Receipt Date: 20060807
  Transmission Date: 20061208
  Serious: Yes (Hospitalization, Other)
  Sender: FDA-Public Use
  Company Number: US200602002463

PATIENT
  Age: 27 Year
  Sex: Male
  Weight: 136.1 kg

DRUGS (11)
  1. ZYPREXA [Suspect]
     Indication: DEPRESSION
     Dosage: 10 MG, DAILY (1/D), ORAL; SEE IMAGE
     Route: 048
     Dates: start: 20000616, end: 20000622
  2. ZYPREXA [Suspect]
     Indication: DEPRESSION
     Dosage: 10 MG, DAILY (1/D), ORAL; SEE IMAGE
     Route: 048
     Dates: start: 20000622, end: 20000706
  3. ZYPREXA [Suspect]
     Indication: DEPRESSION
     Dosage: 10 MG, DAILY (1/D), ORAL; SEE IMAGE
     Route: 048
     Dates: start: 20000706, end: 20010323
  4. ZYPREXA [Suspect]
     Indication: DEPRESSION
     Dosage: 10 MG, DAILY (1/D), ORAL; SEE IMAGE
     Route: 048
     Dates: start: 20010101, end: 20010601
  5. ZYPREXA [Suspect]
     Indication: DEPRESSION
     Dosage: 10 MG, DAILY (1/D), ORAL; SEE IMAGE
     Route: 048
     Dates: start: 20010608, end: 20010601
  6. ZYPREXA [Suspect]
     Indication: DEPRESSION
     Dosage: 10 MG, DAILY (1/D), ORAL; SEE IMAGE
     Route: 048
     Dates: start: 20010323, end: 20010608
  7. ZYPREXA [Suspect]
     Indication: DEPRESSION
     Dosage: 10 MG, DAILY (1/D), ORAL; SEE IMAGE
     Route: 048
     Dates: start: 20000101
  8. RISPERDAL /SWE/ (RISPERIDONE) [Concomitant]
  9. GEODON [Concomitant]
  10. DEPAKOTE [Concomitant]
  11. LOPRESSOR [Concomitant]

REACTIONS (9)
  - BLOOD CHOLESTEROL INCREASED [None]
  - BLOOD TRIGLYCERIDES INCREASED [None]
  - CEREBROVASCULAR DISORDER [None]
  - DIABETES MELLITUS NON-INSULIN-DEPENDENT [None]
  - HYPERTENSION [None]
  - MYOCARDIAL INFARCTION [None]
  - MYOCARDIAL ISCHAEMIA [None]
  - PRESCRIBED OVERDOSE [None]
  - WEIGHT INCREASED [None]
